FAERS Safety Report 19656497 (Version 1)
Quarter: 2021Q3

REPORT INFORMATION
  Report Type: Spontaneous
  Country: CA (occurrence: CA)
  Receive Date: 20210804
  Receipt Date: 20210804
  Transmission Date: 20211014
  Serious: Yes (Hospitalization)
  Sender: FDA-Public Use
  Company Number: CA-ACCORD-234435

PATIENT
  Age: 65 Year
  Sex: Male

DRUGS (16)
  1. PREGABALIN. [Concomitant]
     Active Substance: PREGABALIN
  2. PREZISTA [Concomitant]
     Active Substance: DARUNAVIR ETHANOLATE
  3. VENLAFAXINE [Concomitant]
     Active Substance: VENLAFAXINE HYDROCHLORIDE
  4. COLECALCIFEROL [Concomitant]
     Active Substance: CHOLECALCIFEROL
  5. ODEFSEY [Concomitant]
     Active Substance: EMTRICITABINE\RILPIVIRINE HYDROCHLORIDE\TENOFOVIR ALAFENAMIDE FUMARATE
  6. ATORVASTATIN/ATORVASTATIN CALCIUM [Suspect]
     Active Substance: ATORVASTATIN CALCIUM
     Indication: DYSLIPIDAEMIA
     Dosage: 1 EVERY 1 DAYS
     Route: 048
  7. RITONAVIR. [Concomitant]
     Active Substance: RITONAVIR
  8. ASA [Concomitant]
     Active Substance: ASPIRIN
  9. PANTOPRAZOLE [Concomitant]
     Active Substance: PANTOPRAZOLE
  10. PEPCID [Concomitant]
     Active Substance: FAMOTIDINE
  11. PERINDOPRIL [Concomitant]
     Active Substance: PERINDOPRIL
  12. QUETIAPINE/QUETIAPINE FUMARATE [Concomitant]
     Active Substance: QUETIAPINE FUMARATE
  13. RISPERIDONE. [Concomitant]
     Active Substance: RISPERIDONE
  14. TIVICAY [Concomitant]
     Active Substance: DOLUTEGRAVIR SODIUM
  15. DILTIAZEM. [Concomitant]
     Active Substance: DILTIAZEM
     Dosage: CAPSULE, EXTENDED RELEASE
  16. THIAMINE. [Concomitant]
     Active Substance: THIAMINE

REACTIONS (6)
  - Rhabdomyolysis [Recovered/Resolved]
  - Blood creatine phosphokinase increased [Recovered/Resolved]
  - Abdominal pain [Recovered/Resolved]
  - Drug interaction [Unknown]
  - Dyspnoea [Recovered/Resolved]
  - Confusional state [Recovered/Resolved]
